FAERS Safety Report 5904890-2 (Version None)
Quarter: 2008Q4

REPORT INFORMATION
  Report Type: 
  Country: None (occurrence: None)
  Receive Date: 20081001
  Receipt Date: 20080924
  Transmission Date: 20090506
  Serious: Yes (Hospitalization)
  Sender: FDA-Public Use
  Company Number: A0750084A

PATIENT
  Age: 75 Year
  Sex: Female

DRUGS (3)
  1. MELPHALAN [Suspect]
     Indication: MULTIPLE MYELOMA
     Route: 065
     Dates: end: 20080101
  2. REVLIMID [Suspect]
     Indication: MULTIPLE MYELOMA
     Dosage: 10MG PER DAY
     Route: 048
     Dates: start: 20080624, end: 20080101
  3. PREDNISONE [Concomitant]
     Dates: start: 20080101

REACTIONS (7)
  - BONE MARROW FAILURE [None]
  - FATIGUE [None]
  - LEUKOPENIA [None]
  - MUSCULOSKELETAL PAIN [None]
  - NEUTROPENIA [None]
  - OSTEOLYSIS [None]
  - PARAESTHESIA [None]
